FAERS Safety Report 12217126 (Version 1)
Quarter: 2016Q1

REPORT INFORMATION
  Report Type: Spontaneous
  Country: US (occurrence: US)
  Receive Date: 20160329
  Receipt Date: 20160329
  Transmission Date: 20160526
  Serious: No
  Sender: FDA-Public Use
  Company Number: US-BAYER-2016-049973

PATIENT
  Age: 70 Year
  Sex: Female
  Weight: 72.56 kg

DRUGS (6)
  1. OMEPRAZOLE. [Concomitant]
     Active Substance: OMEPRAZOLE
  2. MONTELUKAST [Concomitant]
     Active Substance: MONTELUKAST SODIUM
  3. LOSARTAN. [Concomitant]
     Active Substance: LOSARTAN
  4. COQ10 [Concomitant]
     Active Substance: UBIDECARENONE
  5. SIMVASTATIN. [Concomitant]
     Active Substance: SIMVASTATIN
  6. CLARITIN-D 12 HOUR [Suspect]
     Active Substance: LORATADINE\PSEUDOEPHEDRINE SULFATE
     Indication: SEASONAL ALLERGY
     Dosage: 1 DF, ONCE
     Route: 048
     Dates: start: 20160309, end: 20160309

REACTIONS (7)
  - Influenza like illness [Recovered/Resolved]
  - Cough [Recovered/Resolved]
  - Upper respiratory tract infection [Recovered/Resolved]
  - Head discomfort [Recovered/Resolved]
  - Middle insomnia [Recovered/Resolved]
  - Productive cough [Recovered/Resolved]
  - Respiratory tract congestion [Recovered/Resolved]

NARRATIVE: CASE EVENT DATE: 20160310
